FAERS Safety Report 8340336-5 (Version None)
Quarter: 2012Q2

REPORT INFORMATION
  Report Type: 
  Country: None (occurrence: None)
  Receive Date: 20120507
  Receipt Date: 20120425
  Transmission Date: 20120825
  Serious: Yes (Other)
  Sender: FDA-Public Use
  Company Number: GB-TEVA-334865ISR

PATIENT
  Age: 18 Year
  Sex: Female

DRUGS (4)
  1. CLOZAPINE [Interacting]
     Route: 048
     Dates: start: 20120420
  2. CLOZAPINE [Interacting]
     Route: 048
     Dates: start: 20120413, end: 20120418
  3. TRIMETHOPRIM [Suspect]
     Indication: URINARY TRACT INFECTION
  4. CLOZAPINE [Interacting]
     Route: 048
     Dates: start: 20111011, end: 20120411

REACTIONS (5)
  - DRUG INTERACTION [None]
  - NEUTROPHIL COUNT DECREASED [None]
  - WHITE BLOOD CELL COUNT DECREASED [None]
  - LEUKOPENIA [None]
  - NEUTROPENIA [None]
